FAERS Safety Report 4822451-3 (Version None)
Quarter: 2005Q4

REPORT INFORMATION
  Report Type: 
  Country: None (occurrence: None)
  Receive Date: 20051103
  Receipt Date: 20051103
  Transmission Date: 20060501
  Serious: Yes (Life-Threatening, Hospitalization)
  Sender: FDA-Public Use
  Company Number: None

PATIENT
  Age: 59 Year
  Sex: Male
  Weight: 81.4 kg

DRUGS (3)
  1. RITONAVIR [Suspect]
  2. INDINAVIR CAP, ORAL [Suspect]
     Dosage: 800 MG PO
     Route: 048
     Dates: start: 20050517, end: 20050517
  3. COMBIVIR [Suspect]

REACTIONS (1)
  - HYPERBILIRUBINAEMIA [None]
